FAERS Safety Report 23995537 (Version 1)
Quarter: 2024Q2

REPORT INFORMATION
  Report Type: Spontaneous
  Country: CN (occurrence: CN)
  Receive Date: 20240620
  Receipt Date: 20240620
  Transmission Date: 20240717
  Serious: Yes (Other)
  Sender: FDA-Public Use
  Company Number: CN-MYLANLABS-2024M1055097

PATIENT
  Age: 67 Year
  Sex: Male
  Weight: 62.8 kg

DRUGS (1)
  1. LIPITOR [Suspect]
     Active Substance: ATORVASTATIN CALCIUM
     Indication: Arteriosclerosis
     Dosage: 20 MILLIGRAM, QD
     Route: 048
     Dates: start: 20240513, end: 20240609

REACTIONS (4)
  - Myocardial necrosis marker increased [Unknown]
  - Asthenia [Unknown]
  - Myalgia [Unknown]
  - Hepatic function abnormal [Unknown]

NARRATIVE: CASE EVENT DATE: 20240522
